FAERS Safety Report 18500395 (Version 3)
Quarter: 2021Q2

REPORT INFORMATION
  Report Type: Report from Study
  Country: JP (occurrence: JP)
  Receive Date: 20201113
  Receipt Date: 20210531
  Transmission Date: 20210717
  Serious: Yes (Other)
  Sender: FDA-Public Use
  Company Number: JP-AUROBINDO-AUR-APL-2020-056877

PATIENT
  Age: 66 Year
  Sex: Male
  Weight: 63.9 kg

DRUGS (11)
  1. MUNDESINE [Suspect]
     Active Substance: FORODESINE HYDROCHLORIDE
     Indication: CUTANEOUS T-CELL LYMPHOMA STAGE IV
     Dosage: UNK
     Route: 048
  2. FOLOTYN [Suspect]
     Active Substance: PRALATREXATE
     Dosage: 30 MG/M2, DAILY
     Route: 042
     Dates: start: 20200423, end: 20200528
  3. VITAMIN B12 [Concomitant]
     Active Substance: CYANOCOBALAMIN
     Indication: PRODUCT USED FOR UNKNOWN INDICATION
     Dosage: UNK
     Route: 065
     Dates: start: 20200414, end: 20200813
  4. FOLOTYN [Suspect]
     Active Substance: PRALATREXATE
     Dosage: 30 MG/M2, DAILY
     Route: 042
     Dates: start: 20200730, end: 20200820
  5. FOLIC ACID. [Concomitant]
     Active Substance: FOLIC ACID
     Indication: PRODUCT USED FOR UNKNOWN INDICATION
     Dosage: UNK
     Route: 065
     Dates: start: 20200414, end: 20200827
  6. FOLOTYN [Suspect]
     Active Substance: PRALATREXATE
     Indication: CUTANEOUS T-CELL LYMPHOMA STAGE IV
     Dosage: CYCLE 3 DAY 1
     Route: 042
  7. FOLOTYN [Suspect]
     Active Substance: PRALATREXATE
     Dosage: CYCLE 3 DAY 15
     Route: 042
  8. FOLOTYN [Suspect]
     Active Substance: PRALATREXATE
     Dosage: CYCLE 1
     Route: 042
  9. FOLOTYN [Suspect]
     Active Substance: PRALATREXATE
     Dosage: CYCLE 3 DAY 8
     Route: 042
  10. FOLOTYN [Suspect]
     Active Substance: PRALATREXATE
     Dosage: CYCLE 2
     Route: 042
  11. FOLOTYN [Suspect]
     Active Substance: PRALATREXATE
     Dosage: 30 MG/M2, DAILY
     Route: 042
     Dates: start: 20200611, end: 20200716

REACTIONS (3)
  - Blood lactate dehydrogenase increased [Unknown]
  - Malignant neoplasm progression [Unknown]
  - Therapeutic response decreased [Unknown]

NARRATIVE: CASE EVENT DATE: 20200825
